FAERS Safety Report 6740337-4 (Version None)
Quarter: 2010Q2

REPORT INFORMATION
  Report Type: 
  Country: None (occurrence: None)
  Receive Date: 20100521
  Receipt Date: 20100511
  Transmission Date: 20101027
  Serious: Yes (Death, Hospitalization, Other)
  Sender: FDA-Public Use
  Company Number: 012026

PATIENT
  Age: 56 Year
  Sex: Female

DRUGS (3)
  1. PREDNISOLONE [Suspect]
     Dosage: (5 MG (2D)
  2. AZATHIOPRINE [Suspect]
     Indication: LUPUS NEPHRITIS
     Dosage: (50 MG QD)
  3. AZATHIOPRINE [Suspect]
     Indication: SYSTEMIC LUPUS ERYTHEMATOSUS
     Dosage: (50 MG QD)

REACTIONS (15)
  - ACUTE RESPIRATORY DISTRESS SYNDROME [None]
  - ANAEMIA [None]
  - ANTIPHOSPHOLIPID SYNDROME [None]
  - ARTERIAL THROMBOSIS [None]
  - CEREBRAL INFARCTION [None]
  - CIRCULATORY COLLAPSE [None]
  - DEVICE RELATED INFECTION [None]
  - ENDOCARDITIS NONINFECTIVE [None]
  - MASS [None]
  - MULTI-ORGAN FAILURE [None]
  - PERITONITIS BACTERIAL [None]
  - SEPTIC SHOCK [None]
  - SKIN ULCER [None]
  - THROMBOCYTOPENIA [None]
  - VENOUS THROMBOSIS [None]
